FAERS Safety Report 7472351-8 (Version None)
Quarter: 2011Q2

REPORT INFORMATION
  Report Type: 
  Country: None (occurrence: None)
  Receive Date: 20110511
  Receipt Date: 20110428
  Transmission Date: 20111010
  Serious: Yes (Other)
  Sender: FDA-Public Use
  Company Number: PHHY2011BR35931

PATIENT
  Sex: Female
  Weight: 58 kg

DRUGS (2)
  1. VOLTAREN [Suspect]
     Indication: PAIN
     Dosage: 1 DF, Q12H
     Route: 048
     Dates: start: 20110427, end: 20110428
  2. VOLTAREN [Suspect]
     Dosage: 1 DF
     Route: 048
     Dates: start: 20110428

REACTIONS (5)
  - SPEECH DISORDER [None]
  - DYSPHONIA [None]
  - LOCAL SWELLING [None]
  - EYE SWELLING [None]
  - SWELLING FACE [None]
